FAERS Safety Report 4328815-9 (Version None)
Quarter: 2004Q1

REPORT INFORMATION
  Report Type: 
  Country: None (occurrence: None)
  Receive Date: 20040329
  Receipt Date: 20031223
  Transmission Date: 20041129
  Serious: Yes (Hospitalization)
  Sender: FDA-Public Use
  Company Number: 03P-163-0240760-00

PATIENT
  Age: 64 Year
  Sex: Female
  Weight: 37.6486 kg

DRUGS (6)
  1. HUMIRA [Suspect]
     Indication: RHEUMATOID ARTHRITIS
     Dosage: 40 MG, 1 IN 2 WK, SUBCUTANEOUS
     Route: 058
     Dates: start: 20031108, end: 20031108
  2. IBUPROFEN [Concomitant]
  3. ACETYLSALICYLIC ACID SRT [Concomitant]
  4. RANITIDINE [Concomitant]
  5. IRON SUPPLEMENT [Concomitant]
  6. EPOGEN [Concomitant]

REACTIONS (2)
  - CELLULITIS [None]
  - OEDEMA PERIPHERAL [None]
